FAERS Safety Report 8193490-2 (Version None)
Quarter: 2012Q1

REPORT INFORMATION
  Report Type: 
  Country: None (occurrence: None)
  Receive Date: 20120308
  Receipt Date: 20120228
  Transmission Date: 20120608
  Serious: Yes (Other)
  Sender: FDA-Public Use
  Company Number: FR-FRI-1000028898

PATIENT
  Sex: Female

DRUGS (12)
  1. CITALOPRAM HYDROBROMIDE [Suspect]
     Dosage: 30 MG
     Dates: start: 20080101
  2. VALSARTAN [Concomitant]
     Dosage: 80 MG
     Dates: start: 20100101
  3. NEXIUM [Concomitant]
     Dosage: 20 MG
     Dates: start: 20050101
  4. MONUROL [Concomitant]
     Dosage: 0.1429 DF
     Dates: start: 20100101
  5. FOSAVANCE [Concomitant]
     Dosage: 0.1429 DF
     Dates: start: 20050101
  6. FUROSEMIDE [Concomitant]
     Dosage: 40 MG
     Dates: start: 20040101
  7. MEMANTINE [Suspect]
     Dosage: 20 MG
     Dates: start: 20100101
  8. PHYSIOGINE [Concomitant]
     Dosage: 2 DF
     Dates: start: 20100101
  9. TRAMADOL HCL [Suspect]
     Dosage: 300 MG
     Route: 048
     Dates: start: 20111128, end: 20111201
  10. DIPIPERON [Concomitant]
     Dosage: 2 GTT
     Dates: start: 20100101
  11. LAMISIL [Suspect]
     Dosage: 1 DF
     Route: 048
     Dates: start: 20110901
  12. ACETAMINOPHEN [Concomitant]
     Dosage: 3000 MG
     Dates: start: 20000101

REACTIONS (2)
  - HALLUCINATIONS, MIXED [None]
  - DRUG INTERACTION [None]
